FAERS Safety Report 4742639-X (Version None)
Quarter: 2005Q3

REPORT INFORMATION
  Report Type: 
  Country: None (occurrence: None)
  Receive Date: 20050808
  Receipt Date: 20050726
  Transmission Date: 20060218
  Serious: Yes (Life-Threatening, Hospitalization, Other)
  Sender: FDA-Public Use
  Company Number: USA0507103813

PATIENT
  Age: 43 Year
  Sex: Male
  Weight: 54 kg

DRUGS (3)
  1. HUMULIN R [Suspect]
     Dates: start: 19790301, end: 20050726
  2. HUMULIN N [Suspect]
     Dates: start: 19790301, end: 20050726
  3. LANTUS [Concomitant]

REACTIONS (14)
  - AMNESIA [None]
  - BLOOD GLUCOSE DECREASED [None]
  - BLOOD GLUCOSE INCREASED [None]
  - CONVULSION [None]
  - EXCORIATION [None]
  - GASTROOESOPHAGEAL REFLUX DISEASE [None]
  - HAEMATEMESIS [None]
  - INJECTION SITE CALCIFICATION [None]
  - MIGRAINE [None]
  - NAUSEA [None]
  - TOE AMPUTATION [None]
  - ULCER [None]
  - VOMITING [None]
  - WEIGHT DECREASED [None]
